FAERS Safety Report 7029215-3 (Version None)
Quarter: 2010Q4

REPORT INFORMATION
  Report Type: 
  Country: None (occurrence: None)
  Receive Date: 20101005
  Receipt Date: 20100928
  Transmission Date: 20110411
  Serious: Yes (Other)
  Sender: FDA-Public Use
  Company Number: JO-WYE-H17843710

PATIENT
  Sex: Female

DRUGS (2)
  1. TYGACIL [Suspect]
     Indication: DIABETIC FOOT INFECTION
     Dosage: 100 MG STAT THEN 50 MG TWICE DAILY
     Route: 042
     Dates: start: 20100926, end: 20100928
  2. TYGACIL [Suspect]
     Indication: STAPHYLOCOCCAL INFECTION

REACTIONS (1)
  - MUSCULAR WEAKNESS [None]
